FAERS Safety Report 5599214-7 (Version None)
Quarter: 2008Q1

REPORT INFORMATION
  Report Type: 
  Country: None (occurrence: None)
  Receive Date: 20080122
  Receipt Date: 20080116
  Transmission Date: 20080703
  Serious: Yes (Other)
  Sender: FDA-Public Use
  Company Number: CA-MERCK-0801CAN00155

PATIENT
  Age: 67 Year
  Sex: Female

DRUGS (10)
  1. ZETIA [Suspect]
     Route: 048
  2. INHIBACE [Concomitant]
     Route: 048
  3. ZANTAC [Concomitant]
     Route: 048
  4. ADVAIR DISKUS 100/50 [Concomitant]
     Route: 065
  5. DIDROCAL [Concomitant]
     Route: 048
  6. BEROTEC [Concomitant]
  7. CRESTOR [Concomitant]
     Route: 048
  8. DILTIAZEM CD [Concomitant]
     Route: 048
  9. ASPIRIN [Concomitant]
     Route: 048
  10. GLUCOSAMINE [Concomitant]
     Route: 065

REACTIONS (11)
  - ABDOMINAL PAIN [None]
  - ALANINE AMINOTRANSFERASE INCREASED [None]
  - ASPARTATE AMINOTRANSFERASE INCREASED [None]
  - BLOOD CREATINE PHOSPHOKINASE INCREASED [None]
  - BLOOD CREATININE INCREASED [None]
  - BLOOD LACTATE DEHYDROGENASE INCREASED [None]
  - DEHYDRATION [None]
  - MUSCLE SPASMS [None]
  - NAUSEA [None]
  - RHABDOMYOLYSIS [None]
  - VOMITING [None]
